FAERS Safety Report 19035043 (Version 1)
Quarter: 2021Q1

REPORT INFORMATION
  Report Type: Other
  Country: US (occurrence: US)
  Receive Date: 20210320
  Receipt Date: 20210320
  Transmission Date: 20210420
  Serious: No
  Sender: FDA-Public Use
  Company Number: US-ACORDA-ACO_167380_2020

PATIENT
  Age: 80 Year
  Sex: Male

DRUGS (2)
  1. INBRIJA [Suspect]
     Active Substance: LEVODOPA
     Indication: PARKINSON^S DISEASE
  2. INBRIJA [Suspect]
     Active Substance: LEVODOPA
     Indication: ON AND OFF PHENOMENON
     Dosage: 84 MILLIGRAM, AS NEEDED (NOT TO EXCEED 5 DOSES A DAY)

REACTIONS (7)
  - Wrong technique in device usage process [Unknown]
  - Joint swelling [Unknown]
  - Device occlusion [Unknown]
  - Product communication issue [Unknown]
  - Product residue present [Unknown]
  - Product packaging issue [Unknown]
  - Fall [Unknown]

NARRATIVE: CASE EVENT DATE: 20201229
